FAERS Safety Report 5213465-2 (Version None)
Quarter: 2007Q1

REPORT INFORMATION
  Report Type: 
  Country: None (occurrence: None)
  Receive Date: 20070119
  Receipt Date: 20070109
  Transmission Date: 20070707
  Serious: Yes (Hospitalization)
  Sender: FDA-Public Use
  Company Number: FR-SANOFI-SYNTHELABO-A02200602348

PATIENT
  Sex: Female
  Weight: 47 kg

DRUGS (9)
  1. ELOXATIN [Suspect]
     Indication: NON-HODGKIN'S LYMPHOMA
     Dosage: 158 MG/M2
     Route: 042
     Dates: start: 20060307, end: 20060307
  2. NEUPOGEN [Concomitant]
     Indication: PREMEDICATION
     Route: 042
  3. B 26 [Concomitant]
     Indication: DRUG USE FOR UNKNOWN INDICATION
     Route: 042
     Dates: start: 20060306, end: 20060307
  4. POLARAMINE [Concomitant]
     Indication: PREMEDICATION
     Dosage: 3 MG
     Route: 042
     Dates: start: 20060306, end: 20060306
  5. DEXAMETHASONE [Concomitant]
     Indication: DRUG USE FOR UNKNOWN INDICATION
     Route: 042
     Dates: start: 20060306, end: 20060307
  6. MABTHERA [Suspect]
     Indication: NON-HODGKIN'S LYMPHOMA
     Dosage: UNK
     Route: 042
     Dates: start: 20060306, end: 20060306
  7. KYTRIL [Suspect]
     Indication: DRUG USE FOR UNKNOWN INDICATION
     Dosage: 3 MG
     Route: 042
     Dates: start: 20060306, end: 20060306
  8. CYTARABINE [Suspect]
     Indication: NON-HODGKIN'S LYMPHOMA
     Dosage: 2425 MG
     Route: 042
     Dates: start: 20060307
  9. PLITICAN [Suspect]
     Indication: DRUG USE FOR UNKNOWN INDICATION
     Dosage: UNK
     Route: 042
     Dates: start: 20060306, end: 20060306

REACTIONS (3)
  - BLOOD URIC ACID INCREASED [None]
  - PROTEINURIA [None]
  - RENAL FAILURE ACUTE [None]
